FAERS Safety Report 7864103-1 (Version None)
Quarter: 2011Q4

REPORT INFORMATION
  Report Type: 
  Country: None (occurrence: None)
  Receive Date: 20111028
  Receipt Date: 20111018
  Transmission Date: 20120403
  Serious: No
  Sender: FDA-Public Use
  Company Number: JP-JNJFOC-20111009737

PATIENT

DRUGS (3)
  1. KETAMINE HCL [Concomitant]
     Indication: CANCER PAIN
     Route: 042
  2. MORPHINE [Concomitant]
     Indication: CANCER PAIN
     Route: 048
  3. FENTANYL-100 [Suspect]
     Indication: CANCER PAIN
     Route: 042

REACTIONS (3)
  - HYPERAESTHESIA [None]
  - DRUG TOLERANCE [None]
  - INCORRECT ROUTE OF DRUG ADMINISTRATION [None]
